FAERS Safety Report 23458466 (Version 3)
Quarter: 2024Q2

REPORT INFORMATION
  Report Type: Spontaneous
  Country: US (occurrence: US)
  Receive Date: 20240130
  Receipt Date: 20240522
  Transmission Date: 20240716
  Serious: Yes (Other)
  Sender: FDA-Public Use
  Company Number: US-BRISTOL-MYERS SQUIBB COMPANY-2024-014188

PATIENT
  Age: 80 Year
  Sex: Female

DRUGS (1)
  1. REVLIMID [Suspect]
     Active Substance: LENALIDOMIDE
     Indication: Plasma cell myeloma
     Dosage: TAKE1 WHOLE CAPSULE BY MOUTH WITH WATER W/ OR W/O FOOD AT THE SAME TIME EVERY DAY 1 WEEK ON THEN 1 W
     Route: 048

REACTIONS (4)
  - White blood cell count decreased [Not Recovered/Not Resolved]
  - Fatigue [Unknown]
  - Constipation [Unknown]
  - Off label use [Unknown]
